FAERS Safety Report 4764129-0 (Version None)
Quarter: 2005Q3

REPORT INFORMATION
  Report Type: 
  Country: None (occurrence: None)
  Receive Date: 20050906
  Receipt Date: 20050613
  Transmission Date: 20060218
  Serious: No
  Sender: FDA-Public Use
  Company Number: 2005-BP-09851BP

PATIENT
  Age: 71 Year
  Sex: Female
  Weight: 75.5 kg

DRUGS (6)
  1. SPIRIVA [Suspect]
     Indication: CHRONIC OBSTRUCTIVE PULMONARY DISEASE
     Dosage: 18 MCG (18 MCG, QD), IH
     Route: 055
     Dates: start: 20050607, end: 20050617
  2. ATROVENT [Concomitant]
  3. ADVAIR DISKUS 100/50 [Concomitant]
  4. ACCUPRIL [Concomitant]
  5. CARDIZEM [Concomitant]
  6. FOLIC ACID [Concomitant]

REACTIONS (2)
  - CHEST DISCOMFORT [None]
  - DYSPNOEA EXACERBATED [None]
